FAERS Safety Report 15310606 (Version 1)
Quarter: 2018Q3

REPORT INFORMATION
  Report Type: Spontaneous
  Country: GB (occurrence: DE)
  Receive Date: 20180823
  Receipt Date: 20180823
  Transmission Date: 20181010
  Serious: Yes (Hospitalization)
  Sender: FDA-Public Use
  Company Number: DE-FRESENIUS KABI-FK201808795

PATIENT
  Age: 80 Year
  Sex: Male
  Weight: 76 kg

DRUGS (2)
  1. GEMCITABINE [Suspect]
     Active Substance: GEMCITABINE\GEMCITABINE HYDROCHLORIDE
     Indication: PANCREATIC CARCINOMA
     Route: 065
  2. ABRAXANE [Suspect]
     Active Substance: PACLITAXEL
     Indication: PRODUCT USED FOR UNKNOWN INDICATION
     Route: 041

REACTIONS (8)
  - Fall [Recovered/Resolved]
  - Diarrhoea [Recovered/Resolved]
  - Pancytopenia [Recovered/Resolved]
  - Mucosal inflammation [Recovered/Resolved]
  - Decreased appetite [Recovered/Resolved]
  - Dehydration [Recovered/Resolved]
  - Acute kidney injury [Recovered/Resolved]
  - Asthenia [Recovered/Resolved]

NARRATIVE: CASE EVENT DATE: 201803
